FAERS Safety Report 15048153 (Version 1)
Quarter: 2018Q2

REPORT INFORMATION
  Report Type: Spontaneous
  Country: DE (occurrence: DE)
  Receive Date: 20180622
  Receipt Date: 20180622
  Transmission Date: 20180711
  Serious: Yes (Other)
  Sender: FDA-Public Use
  Company Number: DE-PAN-2018-000315

PATIENT
  Age: 30 Year
  Sex: Female

DRUGS (2)
  1. FERRIC CARBOXYMALTOSE [Interacting]
     Active Substance: FERRIC CARBOXYMALTOSE
     Indication: MENORRHAGIA
  2. TACROLIMUS. [Suspect]
     Active Substance: TACROLIMUS
     Indication: IMMUNOSUPPRESSION

REACTIONS (3)
  - Tubulointerstitial nephritis [Unknown]
  - Drug interaction [Unknown]
  - Transplant rejection [Unknown]
